FAERS Safety Report 4325785-4 (Version None)
Quarter: 2004Q1

REPORT INFORMATION
  Report Type: 
  Country: None (occurrence: None)
  Receive Date: 20040323
  Receipt Date: 20040310
  Transmission Date: 20041129
  Serious: Yes (Death)
  Sender: FDA-Public Use
  Company Number: NSADSS2002038479

PATIENT
  Age: 66 Year
  Sex: Female

DRUGS (4)
  1. DURAGESIC [Suspect]
     Dosage: SEE IMAGE
     Route: 062
     Dates: start: 20020208
  2. DURAGESIC [Suspect]
     Dosage: SEE IMAGE
     Route: 062
     Dates: start: 20020214
  3. DURAGESIC [Suspect]
     Dosage: SEE IMAGE
     Route: 062
     Dates: start: 20020327
  4. ACTIQ [Concomitant]

REACTIONS (1)
  - GENERAL PHYSICAL HEALTH DETERIORATION [None]
